FAERS Safety Report 9258825 (Version 1)
Quarter: 2013Q2

REPORT INFORMATION
  Report Type: Spontaneous
  Country: US (occurrence: US)
  Receive Date: 20130426
  Receipt Date: 20130426
  Transmission Date: 20140414
  Serious: Yes (Other)
  Sender: FDA-Public Use
  Company Number: US-GLAXOSMITHKLINE-A1015169A

PATIENT
  Age: 14 Year
  Sex: Female
  Weight: 72.6 kg

DRUGS (2)
  1. FLOVENT [Suspect]
     Indication: PRODUCT USED FOR UNKNOWN INDICATION
     Dosage: 110MCG AS REQUIRED
     Route: 055
     Dates: start: 20110913
  2. VENTOLIN HFA [Suspect]
     Indication: PRODUCT USED FOR UNKNOWN INDICATION
     Dosage: 90MCG AS REQUIRED
     Route: 055
     Dates: start: 20110913

REACTIONS (7)
  - Pneumonia [Recovered/Resolved]
  - Malaise [Recovered/Resolved]
  - Cough [Recovered/Resolved]
  - Wheezing [Recovered/Resolved]
  - Dyspnoea [Recovered/Resolved]
  - Expired drug administered [Unknown]
  - Drug administration error [Unknown]
